FAERS Safety Report 9933384 (Version 2)
Quarter: 2014Q1

REPORT INFORMATION
  Report Type: Report from Study
  Country: US (occurrence: US)
  Receive Date: 20140228
  Receipt Date: 20140228
  Transmission Date: 20141002
  Serious: No
  Sender: FDA-Public Use
  Company Number: US-MYLANLABS-2013S1007776

PATIENT
  Age: 19 Year
  Sex: Female
  Weight: 50.8 kg

DRUGS (2)
  1. AMNESTEEM CAPSULES [Suspect]
     Indication: ACNE CYSTIC
     Route: 048
     Dates: start: 20121203, end: 20130403
  2. OCELLA [Concomitant]
     Route: 048

REACTIONS (3)
  - Haematochezia [Recovered/Resolved]
  - Painful defaecation [Not Recovered/Not Resolved]
  - Abdominal pain [Not Recovered/Not Resolved]
